FAERS Safety Report 8803138 (Version 5)
Quarter: 2013Q1

REPORT INFORMATION
  Report Type: Spontaneous
  Country: US (occurrence: US)
  Receive Date: 20120924
  Receipt Date: 20130228
  Transmission Date: 20140127
  Serious: Yes (Hospitalization, Other)
  Sender: FDA-Public Use
  Company Number: US-009507513-1209USA006229

PATIENT
  Sex: Female

DRUGS (6)
  1. RIBAVIRIN [Suspect]
     Indication: HEPATITIS C
     Dosage: 2 DF, AM
     Route: 048
     Dates: start: 20120829
  2. RIBAVIRIN [Suspect]
     Dosage: 2 DF, PM
     Route: 048
     Dates: start: 20120829
  3. RIBAVIRIN [Suspect]
     Dosage: 1 DF, PM
     Route: 048
  4. RIBAVIRIN [Suspect]
     Dosage: 1 DF, AM
     Route: 048
  5. VICTRELIS [Suspect]
     Indication: HEPATITIS C
     Dosage: UNK
     Route: 048
     Dates: start: 20120927
  6. PEGASYS [Suspect]
     Indication: HEPATITIS C
     Dosage: UNK
     Dates: start: 20120828

REACTIONS (38)
  - Transfusion [Unknown]
  - Hypotension [Unknown]
  - Gait disturbance [Unknown]
  - Chest pain [Unknown]
  - Oedema peripheral [Unknown]
  - Anaemia [Unknown]
  - Asthenia [Unknown]
  - Fatigue [Unknown]
  - Oedema [Unknown]
  - Pain [Unknown]
  - Face oedema [Unknown]
  - Chills [Unknown]
  - Chills [Unknown]
  - Mental status changes [Unknown]
  - Ear pain [Unknown]
  - Gingival pain [Unknown]
  - Fatigue [Unknown]
  - Insomnia [Unknown]
  - Pruritus [Unknown]
  - Influenza like illness [Unknown]
  - Drug dose omission [Unknown]
  - Anaemia [Unknown]
  - Rash [Unknown]
  - Pruritus [Unknown]
  - Epistaxis [Unknown]
  - Nasal congestion [Unknown]
  - Dizziness [Unknown]
  - Anaemia [Unknown]
  - Hypotension [Unknown]
  - Fatigue [Unknown]
  - Dizziness [Unknown]
  - Speech disorder [Unknown]
  - Rash [Unknown]
  - Pruritus [Unknown]
  - Insomnia [Unknown]
  - Fatigue [Unknown]
  - Headache [Unknown]
  - Chills [Unknown]
